FAERS Safety Report 7572738-9 (Version None)
Quarter: 2011Q2

REPORT INFORMATION
  Report Type: 
  Country: None (occurrence: None)
  Receive Date: 20110620
  Receipt Date: 20110606
  Transmission Date: 20111010
  Serious: Yes (Life-Threatening, Other)
  Sender: FDA-Public Use
  Company Number: 949070

PATIENT
  Age: 26 Year
  Sex: Female
  Weight: 58.5 kg

DRUGS (14)
  1. ALBUTEROL [Concomitant]
  2. CALCICHEW-D3 FORTE [Concomitant]
  3. AMIKACIN [Concomitant]
  4. CILEST [Concomitant]
  5. SODIUM CHLLORIDE [Concomitant]
  6. LANSOPRAZOLE [Concomitant]
  7. VIT E [Concomitant]
  8. COD LIVER OIL [Concomitant]
  9. SYMBICORT TU [Concomitant]
  10. MEROPENEM [Suspect]
     Indication: INFECTIVE PULMONARY EXACERBATION OF CYSTIC FIBROSIS
     Dosage: 2 GRAM(S), INTRAVENOUS
     Route: 042
     Dates: start: 20110407, end: 20110407
  11. CALOGEN [Concomitant]
  12. CREON [Concomitant]
  13. NYSTATIN [Concomitant]
  14. CHLORHEXIDINE GLUCONATE [Concomitant]

REACTIONS (2)
  - CYANOSIS [None]
  - ANAPHYLACTIC REACTION [None]
